FAERS Safety Report 11423487 (Version 1)
Quarter: 2015Q3

REPORT INFORMATION
  Report Type: Spontaneous
  Country: CH (occurrence: BR)
  Receive Date: 20150827
  Receipt Date: 20150827
  Transmission Date: 20151125
  Serious: Yes (Other)
  Sender: FDA-Public Use
  Company Number: CH-LPDUSPRD-20150633

PATIENT
  Age: 66 Year
  Sex: Female
  Weight: 60.4 kg

DRUGS (4)
  1. FERINJECT [Suspect]
     Active Substance: FERRIC CARBOXYMALTOSE
     Dosage: 500 MG
     Route: 042
     Dates: start: 201508
  2. PANTOZOL [Concomitant]
     Active Substance: PANTOPRAZOLE SODIUM
     Route: 065
  3. SUCRAFILM CP [Concomitant]
     Route: 065
  4. COMPLEXO B GTS MANIPULADO [Concomitant]
     Route: 065

REACTIONS (4)
  - Respiratory distress [Unknown]
  - Flushing [Unknown]
  - Abdominal pain upper [Unknown]
  - Malaise [Unknown]

NARRATIVE: CASE EVENT DATE: 20150806
